FAERS Safety Report 16084359 (Version 1)
Quarter: 2019Q2

REPORT INFORMATION
  Report Type: Spontaneous
  Country: US (occurrence: US)
  Receive Date: 20190316
  Receipt Date: 20190316
  Transmission Date: 20190711
  Serious: Yes (Other)
  Sender: FDA-Public Use
  Company Number: None

PATIENT
  Age: 48 Year
  Sex: Female
  Weight: 41.85 kg

DRUGS (2)
  1. AZELASTINE HCL [Suspect]
     Active Substance: AZELASTINE HYDROCHLORIDE
     Indication: SNEEZING
     Dosage: ?          QUANTITY:1 SPRAY(S);?
     Route: 055
     Dates: start: 20180103, end: 20180105
  2. LEVOTHYROXINE. [Concomitant]
     Active Substance: LEVOTHYROXINE

REACTIONS (7)
  - Epistaxis [None]
  - Hyposmia [None]
  - Nasal discomfort [None]
  - Rhinorrhoea [None]
  - Rhinitis [None]
  - Sneezing [None]
  - Anosmia [None]

NARRATIVE: CASE EVENT DATE: 20180105
